FAERS Safety Report 6074805-8 (Version None)
Quarter: 2009Q1

REPORT INFORMATION
  Report Type: 
  Country: None (occurrence: None)
  Receive Date: 20090212
  Receipt Date: 20090206
  Transmission Date: 20090719
  Serious: Yes (Other)
  Sender: FDA-Public Use
  Company Number: US-BAYER-200912657NA

PATIENT

DRUGS (1)
  1. AVELOX [Suspect]
     Indication: PNEUMONIA

REACTIONS (3)
  - HYPERSENSITIVITY [None]
  - PHARYNGEAL OEDEMA [None]
  - RASH [None]
